FAERS Safety Report 9704320 (Version 2)
Quarter: 2014Q1

REPORT INFORMATION
  Report Type: Spontaneous
  Country: US (occurrence: US)
  Receive Date: 20131122
  Receipt Date: 20140108
  Transmission Date: 20141002
  Serious: Yes (Other)
  Sender: FDA-Public Use
  Company Number: US-BAYER-2013-139603

PATIENT
  Age: 82 Year
  Sex: Female
  Weight: 87.08 kg

DRUGS (6)
  1. ADEMPAS [Suspect]
     Indication: PULMONARY ARTERIAL HYPERTENSION
     Dosage: 1 MG, TID
     Route: 048
     Dates: start: 20131108, end: 20131111
  2. LASIX [Concomitant]
  3. ASPIRIN [Concomitant]
  4. POTASSIUM [Concomitant]
  5. MICARDIS [Concomitant]
  6. CARDIZEM [Concomitant]

REACTIONS (3)
  - Dyspnoea at rest [None]
  - Oedema peripheral [None]
  - Oedema peripheral [None]
